FAERS Safety Report 13130482 (Version 3)
Quarter: 2017Q1

REPORT INFORMATION
  Report Type: Spontaneous
  Country: US (occurrence: US)
  Receive Date: 20170119
  Receipt Date: 20170321
  Transmission Date: 20170428
  Serious: Yes (Death, Hospitalization, Other)
  Sender: FDA-Public Use
  Company Number: US-JNJFOC-20170116597

PATIENT
  Age: 86 Year
  Sex: Male

DRUGS (2)
  1. POTASSIUM CHLORIDE. [Concomitant]
     Active Substance: POTASSIUM CHLORIDE
  2. IMBRUVICA [Suspect]
     Active Substance: IBRUTINIB
     Indication: NON-HODGKIN^S LYMPHOMA
     Route: 048
     Dates: start: 20161102

REACTIONS (4)
  - Pneumonia [Unknown]
  - Metastases to central nervous system [Unknown]
  - Dementia [Fatal]
  - Encephalopathy [Fatal]

NARRATIVE: CASE EVENT DATE: 20170111
